FAERS Safety Report 8509069-6 (Version None)
Quarter: 2012Q3

REPORT INFORMATION
  Report Type: 
  Country: None (occurrence: None)
  Receive Date: 20120713
  Receipt Date: 20120709
  Transmission Date: 20120928
  Serious: Yes (Hospitalization, Other)
  Sender: FDA-Public Use
  Company Number: JP-PFIZER INC-2009172313

PATIENT
  Age: 61 Year
  Sex: Male
  Weight: 61 kg

DRUGS (7)
  1. EMPYNASE P [Concomitant]
     Dosage: UNK
     Route: 048
     Dates: start: 20090117, end: 20090127
  2. ASTOMIN [Concomitant]
     Dosage: UNK
     Route: 048
     Dates: start: 20090117, end: 20090127
  3. HACHIAZULE [Concomitant]
     Dosage: UNK
     Route: 048
     Dates: start: 20090110, end: 20090205
  4. CEFDINIR [Concomitant]
     Dosage: UNK
     Route: 048
     Dates: start: 20090117, end: 20090127
  5. FLUMARIN [Concomitant]
     Dosage: UNK
     Route: 042
     Dates: start: 20090118, end: 20090127
  6. SUNITINIB MALATE [Suspect]
     Indication: RENAL CELL CARCINOMA
     Dosage: 50 MG, 1X/DAY
     Route: 048
     Dates: start: 20090109, end: 20090119
  7. MUCOSTA [Concomitant]
     Dosage: UNK
     Route: 048
     Dates: start: 20090117, end: 20090127

REACTIONS (1)
  - ERYTHEMA MULTIFORME [None]
